FAERS Safety Report 22825225 (Version 2)
Quarter: 2024Q3

REPORT INFORMATION
  Report Type: Spontaneous
  Country: CA (occurrence: CA)
  Receive Date: 20230816
  Receipt Date: 20240906
  Transmission Date: 20241016
  Serious: Yes (Hospitalization, Other)
  Sender: SANOFI AVENTIS
  Company Number: CA-SA-SAC20230811001273

PATIENT
  Age: 87 Year
  Sex: Male
  Weight: 72 kg

DRUGS (23)
  1. LOVENOX [Suspect]
     Active Substance: ENOXAPARIN SODIUM
     Dosage: 80 MG, QD
     Route: 058
     Dates: start: 20230213, end: 20230216
  2. ASPIRIN [Suspect]
     Active Substance: ASPIRIN
     Dosage: 80 MG, QD
     Route: 048
     Dates: start: 20181119
  3. ACETAMINOPHEN [Concomitant]
     Active Substance: ACETAMINOPHEN
     Dosage: UNK
  4. ATORVASTATIN [Concomitant]
     Active Substance: ATORVASTATIN
     Dosage: UNK
  5. ATROPINE [Concomitant]
     Active Substance: ATROPINE
     Dosage: UNK
  6. CLOXACILLIN [Concomitant]
     Active Substance: CLOXACILLIN
     Dosage: UNK
  7. DICLOFENAC [Concomitant]
     Active Substance: DICLOFENAC
     Dosage: UNK
  8. FOLVITE [Concomitant]
     Active Substance: FOLIC ACID
     Dosage: UNK
  9. FUSIDIC ACID [Concomitant]
     Active Substance: FUSIDIC ACID
     Dosage: UNK
  10. GLYCERIN [Concomitant]
     Active Substance: GLYCERIN
     Dosage: UNK
  11. HALOPERIDOL [Concomitant]
     Active Substance: HALOPERIDOL
     Dosage: UNK
  12. METFORMIN [Concomitant]
     Active Substance: METFORMIN HYDROCHLORIDE
     Dosage: UNK
  13. METHOTREXATE [Concomitant]
     Active Substance: METHOTREXATE
     Dosage: UNK
  14. BISOPROLOL FUMARATE [Concomitant]
     Active Substance: BISOPROLOL FUMARATE
     Dosage: UNK
  15. NITROGLYCERIN [Concomitant]
     Active Substance: NITROGLYCERIN
     Dosage: UNK
  16. ONDANSETRON [Concomitant]
     Active Substance: ONDANSETRON
     Dosage: UNK
  17. PANTOPRAZOLE [Concomitant]
     Active Substance: PANTOPRAZOLE
     Dosage: UNK
  18. CETIRIZINE HYDROCHLORIDE [Concomitant]
     Active Substance: CETIRIZINE HYDROCHLORIDE
     Dosage: UNK
  19. TOPICORT [Concomitant]
     Active Substance: DESOXIMETASONE
     Dosage: UNK
  20. VITAMIN B12 [Concomitant]
     Active Substance: CYANOCOBALAMIN
     Dosage: UNK
  21. BETAMETHASONE [Concomitant]
     Active Substance: BETAMETHASONE
     Dosage: UNK
  22. MAGNESIUM [Concomitant]
     Active Substance: MAGNESIUM
     Dosage: UNK
  23. SENNOSIDES [Concomitant]
     Active Substance: SENNOSIDES
     Dosage: UNK

REACTIONS (5)
  - Arthralgia [Recovered/Resolved]
  - Shock haemorrhagic [Recovered/Resolved]
  - Haematoma muscle [Recovered/Resolved]
  - Haemoglobin decreased [Recovered/Resolved]
  - Intensive care [Recovered/Resolved]

NARRATIVE: CASE EVENT DATE: 20230217
